FAERS Safety Report 22524674 (Version 1)
Quarter: 2023Q2

REPORT INFORMATION
  Report Type: Spontaneous
  Country: US (occurrence: US)
  Receive Date: 20230606
  Receipt Date: 20230606
  Transmission Date: 20230722
  Serious: Yes (Hospitalization, Other)
  Sender: FDA-Public Use
  Company Number: US-TAKEDA-2023TUS046180

PATIENT
  Sex: Female
  Weight: 26.74 kg

DRUGS (2)
  1. ADDERALL XR [Suspect]
     Active Substance: AMPHETAMINE ASPARTATE\AMPHETAMINE SULFATE\DEXTROAMPHETAMINE SACCHARATE\DEXTROAMPHETAMINE SULFATE
     Indication: Attention deficit hyperactivity disorder
     Dosage: 15 MILLIGRAM, QD
     Route: 065
     Dates: start: 20220726, end: 202303
  2. DEXTROAMPHET SACCHARAT, AMPHET ASPARTATE, DEXTROAMPHET SULFATE AND AMP [Suspect]
     Active Substance: AMPHETAMINE ASPARTATE\AMPHETAMINE ASPARTATE MONOHYDRATE\AMPHETAMINE SULFATE\DEXTROAMPHETAMINE SACCHA
     Indication: Product used for unknown indication
     Dosage: UNK
     Route: 065

REACTIONS (28)
  - Loss of consciousness [Unknown]
  - Paralysis [Unknown]
  - Blindness transient [Unknown]
  - Traumatic haemorrhage [Unknown]
  - Circulatory collapse [Unknown]
  - Weight increased [Unknown]
  - Fall [Unknown]
  - Concussion [Unknown]
  - Memory impairment [Unknown]
  - Back pain [Unknown]
  - Erythema [Unknown]
  - Head injury [Unknown]
  - Spinal pain [Unknown]
  - Face injury [Unknown]
  - Disturbance in attention [Unknown]
  - Pruritus [Unknown]
  - Pain [Unknown]
  - Vision blurred [Unknown]
  - Coordination abnormal [Unknown]
  - Asthenia [Unknown]
  - Mydriasis [Unknown]
  - Urticaria [Unknown]
  - Depression [Unknown]
  - Dizziness [Unknown]
  - Fatigue [Unknown]
  - Insomnia [Unknown]
  - Drug ineffective [Unknown]
  - Product availability issue [Unknown]
